FAERS Safety Report 15508564 (Version 1)
Quarter: 2018Q4

REPORT INFORMATION
  Report Type: Report from Study
  Country: US (occurrence: US)
  Receive Date: 20181016
  Receipt Date: 20181016
  Transmission Date: 20190205
  Serious: Yes (Other)
  Sender: FDA-Public Use
  Company Number: PHEH2018US043035

PATIENT
  Sex: Female

DRUGS (3)
  1. COSENTYX [Suspect]
     Active Substance: SECUKINUMAB
     Indication: DERMATITIS
  2. COSENTYX [Suspect]
     Active Substance: SECUKINUMAB
     Indication: PRURITUS
  3. COSENTYX [Suspect]
     Active Substance: SECUKINUMAB
     Indication: PSORIASIS
     Dosage: 300 MG, QMO
     Route: 058

REACTIONS (7)
  - Head injury [Recovering/Resolving]
  - Joint injury [Recovering/Resolving]
  - Limb injury [Unknown]
  - Road traffic accident [Unknown]
  - Respiratory tract infection [Unknown]
  - Cellulitis [Unknown]
  - Skin laceration [Recovering/Resolving]
